FAERS Safety Report 22078142 (Version 3)
Quarter: 2023Q2

REPORT INFORMATION
  Report Type: Report from Study
  Country: BR (occurrence: BR)
  Receive Date: 20230309
  Receipt Date: 20230508
  Transmission Date: 20230721
  Serious: Yes (Other)
  Sender: FDA-Public Use
  Company Number: BR-002147023-NVSC2023BR033048

PATIENT
  Sex: Female

DRUGS (1)
  1. RIBOCICLIB [Suspect]
     Active Substance: RIBOCICLIB
     Indication: Breast cancer female
     Dosage: 3 DOSAGE FORM (NOVEMBER)
     Route: 065
     Dates: start: 20221112

REACTIONS (20)
  - Metastases to central nervous system [Unknown]
  - Metastasis [Unknown]
  - Breast cancer female [Unknown]
  - Malignant neoplasm progression [Unknown]
  - Groin pain [Unknown]
  - Gait disturbance [Recovering/Resolving]
  - Pain [Unknown]
  - Breast inflammation [Recovering/Resolving]
  - Breast swelling [Recovering/Resolving]
  - Erythema [Recovering/Resolving]
  - Inflammation [Unknown]
  - Feeling abnormal [Unknown]
  - Malaise [Unknown]
  - Asthenia [Unknown]
  - Headache [Unknown]
  - Nausea [Recovered/Resolved]
  - Salivary hypersecretion [Recovered/Resolved]
  - Back pain [Unknown]
  - Insomnia [Unknown]
  - Arthralgia [Unknown]
